FAERS Safety Report 6692627-1 (Version None)
Quarter: 2010Q2

REPORT INFORMATION
  Report Type: 
  Country: None (occurrence: None)
  Receive Date: 20100422
  Receipt Date: 20100412
  Transmission Date: 20101027
  Serious: Yes (Other)
  Sender: FDA-Public Use
  Company Number: US-AMGEN-QUU405755

PATIENT
  Sex: Female

DRUGS (9)
  1. NPLATE [Suspect]
     Indication: IDIOPATHIC THROMBOCYTOPENIC PURPURA
     Dates: start: 20090812, end: 20090902
  2. CORTICOSTEROIDS [Concomitant]
  3. RITUXIMAB [Concomitant]
     Dates: start: 20081008
  4. CYCLOPHOSPHAMIDE [Concomitant]
  5. IMMU-G [Concomitant]
  6. VINCRISTINE [Concomitant]
  7. IMURAN [Concomitant]
  8. DANAZOL [Concomitant]
  9. CYCLOSPORINE [Concomitant]

REACTIONS (2)
  - CHOLECYSTITIS [None]
  - DRUG INEFFECTIVE [None]
